FAERS Safety Report 9164894 (Version 1)
Quarter: 2013Q1

REPORT INFORMATION
  Report Type: Spontaneous
  Country: US (occurrence: US)
  Receive Date: 20130315
  Receipt Date: 20130315
  Transmission Date: 20140127
  Serious: Yes (Other)
  Sender: FDA-Public Use
  Company Number: US-MYLANLABS-2012S1026427

PATIENT
  Age: 79 Year
  Sex: Female
  Weight: 58.97 kg

DRUGS (9)
  1. CLOPIDOGREL TABLETS USP [Suspect]
     Indication: ANTIPLATELET THERAPY
     Route: 048
     Dates: start: 201207, end: 20121223
  2. BABY ASPIRIN [Suspect]
     Dates: start: 2006
  3. NORVASC [Concomitant]
  4. TOPROL [Concomitant]
  5. ACCUPRIL [Concomitant]
  6. ZOCOR [Concomitant]
  7. ALDACTONE [Concomitant]
  8. ATIVAN [Concomitant]
  9. NITROGLYCERIN [Concomitant]
     Indication: CHEST PAIN
     Dates: start: 2006

REACTIONS (1)
  - Epistaxis [Recovered/Resolved]
